FAERS Safety Report 15212100 (Version 1)
Quarter: 2018Q3

REPORT INFORMATION
  Report Type: Spontaneous
  Country: US (occurrence: US)
  Receive Date: 20180730
  Receipt Date: 20180730
  Transmission Date: 20181010
  Serious: No
  Sender: FDA-Public Use
  Company Number: US-TRIS PHARMA, INC-2018TRISPO00537

PATIENT

DRUGS (1)
  1. DYANAVEL XR [Suspect]
     Active Substance: AMPHETAMINE
     Indication: ATTENTION DEFICIT/HYPERACTIVITY DISORDER
     Dosage: 6 ML IN THE AM AND 2 ML IN THE PM (TWICE A DAY)
     Route: 065
     Dates: start: 20180524

REACTIONS (2)
  - Off label use [Unknown]
  - Speech disorder [Recovering/Resolving]
